FAERS Safety Report 15371811 (Version 3)
Quarter: 2018Q4

REPORT INFORMATION
  Report Type: Spontaneous
  Country: GB (occurrence: GB)
  Receive Date: 20180911
  Receipt Date: 20181003
  Transmission Date: 20190204
  Serious: Yes (Death, Other)
  Sender: FDA-Public Use
  Company Number: GB-MYLANLABS-2018M1066595

PATIENT
  Age: 10 Month
  Sex: Female
  Weight: 8.16 kg

DRUGS (1)
  1. METHADONE [Suspect]
     Active Substance: METHADONE HYDROCHLORIDE
     Indication: PRODUCT USED FOR UNKNOWN INDICATION
     Dosage: 75 MG, QD
     Route: 063

REACTIONS (7)
  - Electrocardiogram QT prolonged [Fatal]
  - Exposure via breast milk [Unknown]
  - Toxicity to various agents [Fatal]
  - Drug level increased [Fatal]
  - Unresponsive to stimuli [Fatal]
  - Respiratory depression [Fatal]
  - Arrhythmia [Fatal]
